FAERS Safety Report 11533356 (Version 2)
Quarter: 2016Q3

REPORT INFORMATION
  Report Type: Spontaneous
  Country: US (occurrence: US)
  Receive Date: 20150921
  Receipt Date: 20160920
  Transmission Date: 20161109
  Serious: No
  Sender: FDA-Public Use
  Company Number: US-ALLERGAN-1508939US

PATIENT
  Sex: Female

DRUGS (1)
  1. LASTACAFT [Suspect]
     Active Substance: ALCAFTADINE
     Indication: MULTIPLE ALLERGIES
     Route: 047

REACTIONS (2)
  - Eye pruritus [Recovered/Resolved]
  - Conjunctival hyperaemia [Unknown]
